FAERS Safety Report 10247957 (Version 2)
Quarter: 2015Q2

REPORT INFORMATION
  Report Type: Spontaneous
  Country: US (occurrence: US)
  Receive Date: 20140619
  Receipt Date: 20150409
  Transmission Date: 20150821
  Serious: Yes (Death, Life-Threatening, Hospitalization, Disabling, Other)
  Sender: FDA-Public Use
  Company Number: US-009507513-1406USA009637

PATIENT
  Sex: Male
  Weight: 125.17 kg

DRUGS (1)
  1. JANUVIA [Suspect]
     Active Substance: SITAGLIPTIN PHOSPHATE
     Indication: TYPE 2 DIABETES MELLITUS
     Dosage: 100 MG, QD
     Route: 048
     Dates: start: 20090603, end: 20110523

REACTIONS (22)
  - Somnolence [Unknown]
  - Essential hypertension [Unknown]
  - Dry skin [Unknown]
  - Diabetic ketoacidosis [Recovered/Resolved]
  - Acute kidney injury [Recovered/Resolved]
  - Biopsy [Unknown]
  - Hyperlipidaemia [Unknown]
  - Hyperkalaemia [Unknown]
  - Intervertebral disc degeneration [Unknown]
  - Hyperkalaemia [Recovered/Resolved]
  - Surgery [Unknown]
  - Decreased vibratory sense [Unknown]
  - Diabetes mellitus inadequate control [Recovering/Resolving]
  - Metastases to abdominal cavity [Unknown]
  - Depression [Unknown]
  - Lymphadenopathy [Unknown]
  - Stress [Unknown]
  - Confusional state [Unknown]
  - Pancreatic carcinoma metastatic [Fatal]
  - Temperature intolerance [Unknown]
  - Gastrooesophageal reflux disease [Unknown]
  - Abdominal pain [Unknown]

NARRATIVE: CASE EVENT DATE: 20110523
